FAERS Safety Report 19682545 (Version 1)
Quarter: 2021Q3

REPORT INFORMATION
  Report Type: Spontaneous
  Country: CA (occurrence: CA)
  Receive Date: 20210810
  Receipt Date: 20210810
  Transmission Date: 20211014
  Serious: Yes (Other)
  Sender: FDA-Public Use
  Company Number: CA-PFIZER INC-202101006721

PATIENT
  Age: 67 Year
  Sex: Male

DRUGS (5)
  1. FOLIC ACID. [Concomitant]
     Active Substance: FOLIC ACID
     Dosage: 5 MG, WEEKLY
  2. PLAQUENIL [Concomitant]
     Active Substance: HYDROXYCHLOROQUINE SULFATE
     Dosage: 400 MG, DAILY
  3. FOLIC ACID. [Concomitant]
     Active Substance: FOLIC ACID
     Dosage: 1 MG, 1X/DAY
  4. METHOTREXATE SODIUM. [Suspect]
     Active Substance: METHOTREXATE SODIUM
     Dosage: 25 MG, WEEKLY
     Route: 058
     Dates: start: 201805
  5. VITAMIN B12 [Concomitant]
     Active Substance: CYANOCOBALAMIN
     Dosage: UNK

REACTIONS (12)
  - Polyarthritis [Unknown]
  - Kyphosis [Unknown]
  - Abdominal discomfort [Unknown]
  - Foot deformity [Unknown]
  - Drug ineffective [Unknown]
  - Rheumatoid nodule [Not Recovered/Not Resolved]
  - Fear of injection [Unknown]
  - Joint effusion [Unknown]
  - Chronic obstructive pulmonary disease [Unknown]
  - Musculoskeletal stiffness [Unknown]
  - Cardiomegaly [Unknown]
  - Arthritis [Unknown]
